FAERS Safety Report 10564043 (Version 5)
Quarter: 2017Q1

REPORT INFORMATION
  Report Type: Spontaneous
  Country: US (occurrence: US)
  Receive Date: 20141104
  Receipt Date: 20170208
  Transmission Date: 20170428
  Serious: Yes (Hospitalization, Disabling, Other)
  Sender: FDA-Public Use
  Company Number: US-009507513-1411USA000599

PATIENT
  Sex: Female
  Weight: 72.7 kg

DRUGS (7)
  1. PRILOSEC [Concomitant]
     Active Substance: OMEPRAZOLE MAGNESIUM
     Indication: PRODUCT USED FOR UNKNOWN INDICATION
     Dosage: UNK, UNKNOWN
     Route: 065
     Dates: start: 1995
  2. FOSAMAX [Suspect]
     Active Substance: ALENDRONATE SODIUM
     Indication: BONE LOSS
     Dosage: 10 MG, QD
     Route: 048
     Dates: start: 1995, end: 2009
  3. CYANOCOBALAMIN. [Concomitant]
     Active Substance: CYANOCOBALAMIN
     Indication: PRODUCT USED FOR UNKNOWN INDICATION
     Dosage: 2000 MG, QD
     Route: 065
  4. OMEGA-3 MARINE TRIGLYCERIDES [Concomitant]
     Active Substance: FISH OIL
     Indication: PRODUCT USED FOR UNKNOWN INDICATION
     Dosage: 1200 MG, QD
     Route: 065
  5. ALENDRONATE SODIUM. [Suspect]
     Active Substance: ALENDRONATE SODIUM
     Indication: OSTEOPOROSIS
     Dosage: 70 MG, QW
     Route: 048
     Dates: start: 2009, end: 2009
  6. CHONDROITIN SULFATE SODIUM (+) GLUCOSAMINE SULFATE [Concomitant]
     Indication: PRODUCT USED FOR UNKNOWN INDICATION
     Dosage: REGULAR STRENGTH, ONCE DAILY
     Route: 065
     Dates: start: 1990
  7. FOSAMAX [Suspect]
     Active Substance: ALENDRONATE SODIUM
     Dosage: UNK, QW
     Route: 048
     Dates: end: 20100708

REACTIONS (20)
  - Femur fracture [Recovered/Resolved]
  - Radiculopathy [Unknown]
  - Nephrolithiasis [Unknown]
  - Tooth extraction [Unknown]
  - Tooth disorder [Unknown]
  - Depression [Unknown]
  - Blood pressure decreased [Unknown]
  - Gingival disorder [Unknown]
  - Back disorder [Unknown]
  - Neck pain [Unknown]
  - Stress fracture [Unknown]
  - Surgery [Unknown]
  - Raynaud^s phenomenon [Unknown]
  - Oedema [Unknown]
  - Dyspnoea [Unknown]
  - Joint swelling [Unknown]
  - Anxiety [Unknown]
  - Nerve compression [Unknown]
  - Palpitations [Unknown]
  - Arthralgia [Unknown]

NARRATIVE: CASE EVENT DATE: 2000
